FAERS Safety Report 7327813-0 (Version None)
Quarter: 2011Q1

REPORT INFORMATION
  Report Type: 
  Country: None (occurrence: None)
  Receive Date: 20110303
  Receipt Date: 20110301
  Transmission Date: 20110831
  Serious: Yes (Other)
  Sender: FDA-Public Use
  Company Number: US-PFIZER INC-2011045136

PATIENT
  Sex: Female
  Weight: 97.4 kg

DRUGS (15)
  1. DILTIAZEM [Concomitant]
     Indication: ATRIAL FIBRILLATION
     Dosage: UNK
  2. DIGOXIN [Concomitant]
     Indication: ATRIAL FIBRILLATION
     Dosage: UNK
  3. IMIPRAMINE [Concomitant]
     Dosage: UNK, DAILY
  4. CRESTOR [Concomitant]
     Indication: BLOOD CHOLESTEROL INCREASED
     Dosage: UNK
  5. WARFARIN [Concomitant]
     Indication: ATRIAL FIBRILLATION
     Dosage: UNK
  6. GLIMEPIRIDE [Concomitant]
     Indication: DIABETES MELLITUS
     Dosage: UNK
  7. FUROSEMIDE [Concomitant]
     Indication: HYPERTENSION
     Dosage: UNK
  8. VITAMIN D [Concomitant]
     Dosage: UNK
  9. METFORMIN [Concomitant]
     Indication: DIABETES MELLITUS
     Dosage: UNK
  10. TIKOSYN [Suspect]
     Indication: ATRIAL FIBRILLATION
     Dosage: 0.5 MG, 2X/DAY
     Route: 048
     Dates: start: 20060717
  11. NIACIN [Concomitant]
     Indication: BLOOD CHOLESTEROL INCREASED
     Dosage: UNK
  12. AVAPRO [Concomitant]
     Indication: HYPERTENSION
     Dosage: UNK
  13. METOPROLOL [Concomitant]
     Indication: ATRIAL FIBRILLATION
     Dosage: UNK
  14. WARFARIN [Concomitant]
     Indication: CEREBROVASCULAR ACCIDENT
  15. MAGNESIUM OXIDE [Concomitant]
     Dosage: UNK

REACTIONS (5)
  - ELECTROCARDIOGRAM QT PROLONGED [None]
  - MEDICATION RESIDUE [None]
  - BLOOD CHOLESTEROL INCREASED [None]
  - BLOOD GLUCOSE INCREASED [None]
  - BLOOD CALCIUM DECREASED [None]
